FAERS Safety Report 23283701 (Version 1)
Quarter: 2023Q4

REPORT INFORMATION
  Report Type: Spontaneous
  Country: EG (occurrence: EG)
  Receive Date: 20231211
  Receipt Date: 20231211
  Transmission Date: 20240110
  Serious: Yes (Other)
  Sender: FDA-Public Use
  Company Number: EG-SUN PHARMACEUTICAL INDUSTRIES LTD-2023RR-421897

PATIENT
  Age: 70 Year
  Sex: Female
  Weight: 55 kg

DRUGS (7)
  1. CAPECITABINE [Suspect]
     Active Substance: CAPECITABINE
     Indication: Colorectal cancer
     Dosage: 500 MILLIGRAM, BID, TABLETS
     Route: 065
  2. CAPECITABINE [Suspect]
     Active Substance: CAPECITABINE
     Dosage: UNK
     Route: 065
  3. OXALIPLATIN [Suspect]
     Active Substance: OXALIPLATIN
     Indication: Colorectal cancer
     Dosage: 100 MILLILITER, 1DOSE/2 WEEKS
     Route: 042
  4. IRINOTECAN [Suspect]
     Active Substance: IRINOTECAN
     Indication: Colorectal cancer
     Dosage: UNK (1 CYCLE)
     Route: 065
     Dates: start: 202006
  5. BEVACIZUMAB [Suspect]
     Active Substance: BEVACIZUMAB
     Indication: Colorectal cancer
     Dosage: 400 MILLIGRAM, 1DOSE/2 WEEKS
     Route: 042
     Dates: start: 201909
  6. BEVACIZUMAB [Suspect]
     Active Substance: BEVACIZUMAB
     Dosage: UNK, 1 CYCLE
     Route: 065
     Dates: start: 202006
  7. PANITUMUMAB [Concomitant]
     Active Substance: PANITUMUMAB
     Indication: Colorectal cancer
     Dosage: 400 MILLIGRAM, 1DOSE/2 WEEKS
     Route: 042

REACTIONS (7)
  - Therapeutic product effect incomplete [Unknown]
  - Disease progression [Unknown]
  - Fatigue [Unknown]
  - Neurotoxicity [Unknown]
  - Alopecia [Unknown]
  - Neutropenia [Unknown]
  - Asthenia [Unknown]
